FAERS Safety Report 19963197 (Version 1)
Quarter: 2021Q4

REPORT INFORMATION
  Report Type: Spontaneous
  Country: US (occurrence: US)
  Receive Date: 20211016
  Receipt Date: 20211016
  Transmission Date: 20220304
  Serious: No
  Sender: FDA-Public Use
  Company Number: None

PATIENT
  Age: 56 Year
  Sex: Female
  Weight: 58.5 kg

DRUGS (1)
  1. DELSYM [Suspect]
     Active Substance: DEXTROMETHORPHAN
     Indication: Cough
     Dosage: ?          QUANTITY:10 ML;
     Route: 048
     Dates: start: 20211015, end: 20211015

REACTIONS (5)
  - Diarrhoea [None]
  - Anxiety [None]
  - Illness [None]
  - Functional gastrointestinal disorder [None]
  - Cough [None]

NARRATIVE: CASE EVENT DATE: 20211015
